FAERS Safety Report 9418774 (Version 2)
Quarter: 2013Q3

REPORT INFORMATION
  Report Type: Spontaneous
  Country: US (occurrence: US)
  Receive Date: 20130725
  Receipt Date: 20130730
  Transmission Date: 20140515
  Serious: No
  Sender: FDA-Public Use
  Company Number: US-PFIZER INC-2013216140

PATIENT
  Age: 52 Year
  Sex: Female
  Weight: 70.3 kg

DRUGS (1)
  1. NEURONTIN [Suspect]
     Indication: POST HERPETIC NEURALGIA
     Dosage: 1200 MG (TWO TABLETS OF 600MG), 3X/DAY
     Route: 048
     Dates: end: 201307

REACTIONS (2)
  - Pain [Not Recovered/Not Resolved]
  - Pain in extremity [Unknown]
